FAERS Safety Report 15462021 (Version 2)
Quarter: 2018Q4

REPORT INFORMATION
  Report Type: Spontaneous
  Country: JP (occurrence: JP)
  Receive Date: 20181003
  Receipt Date: 20181121
  Transmission Date: 20190204
  Serious: Yes (Life-Threatening, Hospitalization, Other)
  Sender: FDA-Public Use
  Company Number: JP-BIOGEN-2018BI00639755

PATIENT
  Age: 40 Year
  Sex: Female
  Weight: 43.9 kg

DRUGS (8)
  1. TECFIDERA [Suspect]
     Active Substance: DIMETHYL FUMARATE
     Indication: MULTIPLE SCLEROSIS
     Route: 048
     Dates: start: 20170425, end: 20180903
  2. BIO-THREE [Concomitant]
     Active Substance: HERBALS
     Route: 065
  3. LAC-B [Concomitant]
     Active Substance: BIFIDOBACTERIUM SPP.
     Route: 065
  4. MIYA-BM [Concomitant]
     Active Substance: CLOSTRIDIUM BUTYRICUM SPORES STRAIN M-55
     Route: 065
  5. AUGMENTIN [Concomitant]
     Active Substance: AMOXICILLIN\CLAVULANATE POTASSIUM
     Route: 065
  6. TEGRETOL [Concomitant]
     Active Substance: CARBAMAZEPINE
     Indication: MULTIPLE SCLEROSIS
     Dosage: 100
     Route: 048
     Dates: start: 20171016
  7. TECFIDERA [Suspect]
     Active Substance: DIMETHYL FUMARATE
     Route: 048
     Dates: start: 20181022
  8. AMOXICILLIN HYDRATE [Concomitant]
     Active Substance: AMOXICILLIN
     Route: 065

REACTIONS (3)
  - Lymphadenitis bacterial [Unknown]
  - Gingivitis ulcerative [Recovered/Resolved]
  - Abdominal pain upper [Unknown]

NARRATIVE: CASE EVENT DATE: 20180903
